FAERS Safety Report 9957313 (Version 1)
Quarter: 2014Q1

REPORT INFORMATION
  Report Type: Spontaneous
  Country: US (occurrence: US)
  Receive Date: 20140304
  Receipt Date: 20140304
  Transmission Date: 20141002
  Serious: No
  Sender: FDA-Public Use
  Company Number: US-ABBVIE-13P-163-1098057-00

PATIENT
  Sex: Male
  Weight: 52.66 kg

DRUGS (1)
  1. HUMIRA [Suspect]
     Indication: CROHN^S DISEASE
     Route: 058
     Dates: start: 201304

REACTIONS (4)
  - Salivary hypersecretion [Unknown]
  - Nausea [Unknown]
  - Abdominal pain upper [Unknown]
  - Neck pain [Recovering/Resolving]
